FAERS Safety Report 9380787 (Version 1)
Quarter: 2013Q3

REPORT INFORMATION
  Report Type: Spontaneous
  Country: FR (occurrence: FR)
  Receive Date: 20130702
  Receipt Date: 20130702
  Transmission Date: 20140515
  Serious: Yes (Disabling)
  Sender: FDA-Public Use
  Company Number: FR-ELI_LILLY_AND_COMPANY-FR201306007867

PATIENT
  Sex: Male
  Weight: 74 kg

DRUGS (4)
  1. ZYPREXA [Suspect]
     Dosage: 10 MG, QD
     Route: 048
     Dates: start: 2010, end: 201303
  2. EFFEXOR [Concomitant]
     Dosage: 150 MG, BID
     Route: 048
  3. LYRICA [Concomitant]
     Dosage: 200 MG, BID
     Route: 048
  4. TRANXENE [Concomitant]
     Dosage: 20 MG, TID

REACTIONS (1)
  - Camptocormia [Recovering/Resolving]
